FAERS Safety Report 8165911-2 (Version None)
Quarter: 2012Q1

REPORT INFORMATION
  Report Type: 
  Country: None (occurrence: None)
  Receive Date: 20120227
  Receipt Date: 20111122
  Transmission Date: 20120608
  Serious: No
  Sender: FDA-Public Use
  Company Number: US-MYLANLABS-2011S1023020

PATIENT
  Age: 53 Year
  Sex: Female
  Weight: 90.72 kg

DRUGS (11)
  1. BUPROPION HCL [Concomitant]
  2. NASONEX [Concomitant]
  3. ANTIBIOTICS [Concomitant]
     Indication: ACNE
  4. SIMVASTATIN [Concomitant]
     Dates: start: 20090101
  5. CLARITIN /00413701/ [Concomitant]
  6. AMNESTEEM [Suspect]
     Indication: ACNE CYSTIC
     Route: 048
     Dates: start: 20110815, end: 20110916
  7. FEXOFEN [Concomitant]
  8. LISINOPRIL [Concomitant]
  9. LEVOTHROID [Concomitant]
  10. ACETAMINOPHEN AND OXYCODONE HCL [Concomitant]
  11. LEXAPRO [Concomitant]

REACTIONS (3)
  - BLOOD TRIGLYCERIDES INCREASED [None]
  - LOW DENSITY LIPOPROTEIN INCREASED [None]
  - LIVER FUNCTION TEST ABNORMAL [None]
